FAERS Safety Report 9948356 (Version 1)
Quarter: 2014Q1

REPORT INFORMATION
  Report Type: Spontaneous
  Country: US (occurrence: US)
  Receive Date: 20140303
  Receipt Date: 20140303
  Transmission Date: 20141002
  Serious: No
  Sender: FDA-Public Use
  Company Number: US-ABBVIE-13P-163-1059226-00

PATIENT
  Age: 24 Year
  Sex: Female
  Weight: 49.94 kg

DRUGS (2)
  1. HUMIRA [Suspect]
     Indication: CROHN^S DISEASE
     Route: 058
     Dates: start: 201207
  2. AZATHIOPRINE [Concomitant]
     Indication: CROHN^S DISEASE

REACTIONS (2)
  - Device malfunction [Recovered/Resolved]
  - Injection site urticaria [Recovered/Resolved]
